FAERS Safety Report 12870011 (Version 2)
Quarter: 2017Q1

REPORT INFORMATION
  Report Type: Report from Study
  Country: US (occurrence: US)
  Receive Date: 20161020
  Receipt Date: 20170124
  Transmission Date: 20170428
  Serious: No
  Sender: FDA-Public Use
  Company Number: US-AMGEN-USASL2016122814

PATIENT
  Age: 74 Year
  Sex: Male

DRUGS (1)
  1. REPATHA [Suspect]
     Active Substance: EVOLOCUMAB
     Indication: HYPERLIPIDAEMIA
     Dosage: 140 MG, TWICE PER MONTH
     Route: 065
     Dates: start: 201603

REACTIONS (3)
  - Dizziness [Unknown]
  - Malaise [Unknown]
  - Lethargy [Unknown]

NARRATIVE: CASE EVENT DATE: 2016
